FAERS Safety Report 12173654 (Version 1)
Quarter: 2016Q1

REPORT INFORMATION
  Report Type: Spontaneous
  Country: US (occurrence: None)
  Receive Date: 20160311
  Receipt Date: 20160311
  Transmission Date: 20160526
  Serious: No
  Sender: FDA-Public Use
  Company Number: None

PATIENT
  Sex: Female

DRUGS (6)
  1. WARFARIN [Concomitant]
     Active Substance: WARFARIN
  2. CALCIUM [Concomitant]
     Active Substance: CALCIUM
  3. ATENOLOL. [Concomitant]
     Active Substance: ATENOLOL
  4. CAPECITABINE 500MG TAB TEVA [Suspect]
     Active Substance: CAPECITABINE
     Indication: BREAST CANCER
     Dosage: 1500MG BID X 2 WEEKS 1 WEEK OFF ORAL
     Route: 048
     Dates: start: 20140927
  5. POTASSIUM [Concomitant]
     Active Substance: POTASSIUM
  6. FAMOXIFEN [Concomitant]

REACTIONS (2)
  - Skin fissures [None]
  - Dry skin [None]
